FAERS Safety Report 11457171 (Version 9)
Quarter: 2016Q1

REPORT INFORMATION
  Report Type: Report from Study
  Country: US (occurrence: US)
  Receive Date: 20150904
  Receipt Date: 20160302
  Transmission Date: 20160525
  Serious: No
  Sender: FDA-Public Use
  Company Number: PHEH2015US016540

PATIENT
  Sex: Female
  Weight: 83 kg

DRUGS (5)
  1. EXTAVIA [Suspect]
     Active Substance: INTERFERON BETA-1B
     Dosage: WEEKS 5-6: 0.1875 MG (0.75 ML) EVERY OTHER DAY
     Route: 058
  2. EXTAVIA [Suspect]
     Active Substance: INTERFERON BETA-1B
     Dosage: 0.3MG (1 ML), EVERY OTHER DAY
     Route: 058
     Dates: start: 20150822
  3. EXTAVIA [Suspect]
     Active Substance: INTERFERON BETA-1B
     Dosage: WEEKS 7+: 0.25MG (1 ML), EVERY OTHER DAY
     Route: 058
  4. EXTAVIA [Suspect]
     Active Substance: INTERFERON BETA-1B
     Indication: MULTIPLE SCLEROSIS
     Dosage: WEEKS 1-2: 0.0625 MG (0.25 ML)EVERY OTHER DAY
     Route: 058
     Dates: start: 20150819
  5. EXTAVIA [Suspect]
     Active Substance: INTERFERON BETA-1B
     Dosage: WEEKS 3-4: 0.125MG (0.5 ML), EVERY OTHER DAY
     Route: 058

REACTIONS (14)
  - Mood swings [Unknown]
  - Influenza like illness [Recovering/Resolving]
  - Pyrexia [Unknown]
  - Chills [Unknown]
  - Drug dose omission [Recovered/Resolved]
  - Injection site erythema [Recovered/Resolved]
  - Pain [Unknown]
  - Fatigue [Recovered/Resolved]
  - Device defective [Unknown]
  - Inappropriate schedule of drug administration [Recovered/Resolved]
  - Injection site rash [Recovered/Resolved]
  - Headache [Unknown]
  - Injection site bruising [Unknown]
  - Depression [Unknown]
